FAERS Safety Report 12351375 (Version 1)
Quarter: 2016Q2

REPORT INFORMATION
  Report Type: Spontaneous
  Country: FR (occurrence: FR)
  Receive Date: 20160510
  Receipt Date: 20160510
  Transmission Date: 20160815
  Serious: Yes (Hospitalization)
  Sender: FDA-Public Use
  Company Number: FR-PFIZER INC-2016241185

PATIENT
  Age: 20 Year
  Sex: Female

DRUGS (5)
  1. LYRICA [Suspect]
     Active Substance: PREGABALIN
     Dosage: 750 MG, SINGLE
     Route: 048
     Dates: start: 20160318, end: 20160318
  2. FERVEX (ACETAMINOPHEN\ASCORBIC ACID\PHENIRAMINE MALEATE) [Suspect]
     Active Substance: ACETAMINOPHEN\ASCORBIC ACID\PHENIRAMINE MALEATE
  3. IXPRIM [Suspect]
     Active Substance: ACETAMINOPHEN\TRAMADOL HYDROCHLORIDE
     Dosage: 20 DF, SINGLE
     Route: 048
     Dates: start: 20160318, end: 20160318
  4. DOLIPRANE [Suspect]
     Active Substance: ACETAMINOPHEN
     Dosage: 6 G, SINGLE
     Route: 048
     Dates: start: 20160318, end: 20160318
  5. FERVEX /00372301/ [Suspect]
     Active Substance: DICLOFENAC
     Dosage: 32 G, SINGLE
     Route: 048
     Dates: start: 20160318, end: 20160318

REACTIONS (3)
  - Intentional overdose [Recovered/Resolved]
  - Coma [Recovered/Resolved]
  - Poisoning deliberate [Recovered/Resolved]

NARRATIVE: CASE EVENT DATE: 20160318
